FAERS Safety Report 9638143 (Version 2)
Quarter: 2013Q4

REPORT INFORMATION
  Report Type: Spontaneous
  Country: US (occurrence: US)
  Receive Date: 20131022
  Receipt Date: 20131029
  Transmission Date: 20140711
  Serious: No
  Sender: FDA-Public Use
  Company Number: US-PFIZER INC-2013299405

PATIENT
  Sex: Female

DRUGS (5)
  1. PRISTIQ [Suspect]
     Indication: DEPRESSION
     Dosage: 25 MG (BY SPLITTING THE 50MG), 1X/DAY
     Dates: start: 2013, end: 2013
  2. PRISTIQ [Suspect]
     Dosage: 50 MG, 1X/DAY
     Dates: start: 2013, end: 2013
  3. PRISTIQ [Suspect]
     Dosage: UNK
     Dates: start: 2013, end: 2013
  4. PRISTIQ [Suspect]
     Dosage: 50 MG, 1X/DAY
     Dates: start: 20130917, end: 2013
  5. PRISTIQ [Suspect]
     Dosage: 50 MG, DAILY
     Dates: start: 2013

REACTIONS (16)
  - Feeling abnormal [Not Recovered/Not Resolved]
  - Head discomfort [Unknown]
  - Sleep disorder [Unknown]
  - Sedation [Unknown]
  - Vision blurred [Unknown]
  - Fatigue [Not Recovered/Not Resolved]
  - Thyroid disorder [Unknown]
  - Asthenopia [Unknown]
  - Headache [Unknown]
  - Tension headache [Unknown]
  - Burnout syndrome [Unknown]
  - Visual impairment [Unknown]
  - Hypothyroidism [Unknown]
  - Blood thyroid stimulating hormone decreased [Unknown]
  - Insomnia [Unknown]
  - Wrong technique in drug usage process [Unknown]
